FAERS Safety Report 20710118 (Version 1)
Quarter: 2022Q2

REPORT INFORMATION
  Report Type: Report from Study
  Country: CO (occurrence: CO)
  Receive Date: 20220414
  Receipt Date: 20220414
  Transmission Date: 20220721
  Serious: Yes (Other)
  Sender: FDA-Public Use
  Company Number: CO-ABBVIE-22K-036-4283164-00

PATIENT
  Sex: Female
  Weight: 58 kg

DRUGS (17)
  1. HUMIRA [Suspect]
     Active Substance: ADALIMUMAB
     Indication: Rheumatoid arthritis
     Route: 058
     Dates: start: 20180305
  2. ESOMEPRAZOLE [Concomitant]
     Active Substance: ESOMEPRAZOLE
     Indication: Gastritis prophylaxis
     Route: 048
  3. LEFLUNOMIDE [Concomitant]
     Active Substance: LEFLUNOMIDE
     Indication: Rheumatoid arthritis
     Route: 048
     Dates: start: 2018
  4. FOLIC ACID [Concomitant]
     Active Substance: FOLIC ACID
     Indication: Rheumatoid arthritis
     Route: 048
  5. CALTRATE [Concomitant]
     Active Substance: CALCIUM CARBONATE
     Indication: Rheumatoid arthritis
     Route: 048
  6. VITAMIN E [Concomitant]
     Active Substance: .ALPHA.-TOCOPHEROL
     Indication: Rheumatoid arthritis
     Route: 048
  7. DEFLAZACORT [Concomitant]
     Active Substance: DEFLAZACORT
     Indication: Rheumatoid arthritis
     Dosage: REFERS THAT BEFORE SHE USED TO TAKE 1 EVERY 12 HOURS
     Route: 048
     Dates: start: 2020
  8. CETIRIZINE [Concomitant]
     Active Substance: CETIRIZINE HYDROCHLORIDE
     Indication: Rheumatoid arthritis
     Route: 048
  9. MAREOL [Concomitant]
     Indication: Dizziness
     Route: 048
  10. METHOTREXATE [Concomitant]
     Active Substance: METHOTREXATE
     Indication: Rheumatoid arthritis
     Route: 058
  11. LANSOPRAZOLE [Concomitant]
     Active Substance: LANSOPRAZOLE
     Indication: Prophylaxis
     Route: 048
     Dates: start: 2014
  12. TRIMEBUTIN [Concomitant]
     Indication: Colitis
     Route: 048
     Dates: start: 2014
  13. CALCIUM CITRATE [Concomitant]
     Active Substance: CALCIUM CITRATE
     Indication: Osteoporosis
     Dosage: 3 TO 4 YEARS AGO
     Route: 048
     Dates: start: 2019
  14. CALCITRIOL [Concomitant]
     Active Substance: CALCITRIOL
     Indication: Product used for unknown indication
     Dosage: STARTED MORE THAN 4 YEARS AGO
     Route: 048
  15. DEFLAZACORT [Concomitant]
     Active Substance: DEFLAZACORT
     Indication: Product used for unknown indication
     Dosage: REFERS THAT BEFORE SHE USED TO TAKE 1 EVERY 12 HOURS
     Dates: start: 2020
  16. MARINOL [Concomitant]
     Active Substance: DRONABINOL
     Indication: Vertigo
     Route: 048
     Dates: start: 2020
  17. CEVIMELINE [Concomitant]
     Active Substance: CEVIMELINE
     Indication: Rash
     Dates: start: 2020

REACTIONS (9)
  - Tympanic membrane disorder [Not Recovered/Not Resolved]
  - Bronchitis [Not Recovered/Not Resolved]
  - Hyperventilation [Not Recovered/Not Resolved]
  - Hyperhidrosis [Not Recovered/Not Resolved]
  - Nasal septum deviation [Not Recovered/Not Resolved]
  - Nasal turbinate abnormality [Not Recovered/Not Resolved]
  - Ear inflammation [Not Recovered/Not Resolved]
  - Lung disorder [Not Recovered/Not Resolved]
  - Rash [Not Recovered/Not Resolved]

NARRATIVE: CASE EVENT DATE: 20180101
